FAERS Safety Report 22040951 (Version 2)
Quarter: 2023Q1

REPORT INFORMATION
  Report Type: Spontaneous
  Country: US (occurrence: US)
  Receive Date: 20230227
  Receipt Date: 20230328
  Transmission Date: 20230418
  Serious: No
  Sender: FDA-Public Use
  Company Number: US-GSKCCFUS-Case-01632367_AE-92155

PATIENT
  Sex: Male

DRUGS (1)
  1. ADVAIR HFA [Suspect]
     Active Substance: FLUTICASONE PROPIONATE\SALMETEROL XINAFOATE
     Indication: Product used for unknown indication
     Dosage: UNK 230MCG/21MCG

REACTIONS (5)
  - Candida infection [Recovered/Resolved]
  - Dyspnoea [Unknown]
  - Drug ineffective [Unknown]
  - Incorrect dose administered [Unknown]
  - Product complaint [Unknown]
